FAERS Safety Report 4999616-3 (Version None)
Quarter: 2006Q2

REPORT INFORMATION
  Report Type: 
  Country: None (occurrence: None)
  Receive Date: 20060511
  Receipt Date: 20060504
  Transmission Date: 20061013
  Serious: Yes (Hospitalization, Other)
  Sender: FDA-Public Use
  Company Number: US-BRISTOL-MYERS SQUIBB COMPANY-13366786

PATIENT
  Age: 70 Year
  Sex: Male
  Weight: 76 kg

DRUGS (4)
  1. ERBITUX [Suspect]
     Indication: COLON CANCER
     Dosage: DOSING 360-380 MG IV WEEKLY. HELD 01-MAY-2006.
     Route: 042
     Dates: start: 20060424, end: 20060424
  2. CAMPTOSAR [Concomitant]
     Indication: COLON CANCER
     Dates: start: 20060101, end: 20060101
  3. FLUOROURACIL [Concomitant]
     Indication: COLON CANCER
     Dates: start: 20060101, end: 20060101
  4. INSULIN [Concomitant]

REACTIONS (4)
  - DIARRHOEA [None]
  - HEPATIC ENZYME INCREASED [None]
  - NAUSEA [None]
  - SEPSIS [None]
